FAERS Safety Report 9820212 (Version 1)
Quarter: 2014Q1

REPORT INFORMATION
  Report Type: Spontaneous
  Country: US (occurrence: None)
  Receive Date: 20140113
  Receipt Date: 20140113
  Transmission Date: 20141002
  Serious: Yes (Disabling)
  Sender: FDA-Public Use
  Company Number: None

PATIENT
  Age: 22 Year
  Sex: Male
  Weight: 68.04 kg

DRUGS (2)
  1. DIAZEPAM [Suspect]
     Indication: ANXIETY
     Dosage: 3 PILLS/5MG EACH, ONCE DAILY, TAKEN BY MOUTH
     Route: 048
     Dates: start: 20121001, end: 20130117
  2. DIAZEPAM [Suspect]
     Indication: INSOMNIA
     Dosage: 3 PILLS/5MG EACH, ONCE DAILY, TAKEN BY MOUTH
     Route: 048
     Dates: start: 20121001, end: 20130117

REACTIONS (15)
  - Depression [None]
  - Tremor [None]
  - Panic attack [None]
  - Drug withdrawal syndrome [None]
  - Weight decreased [None]
  - Impaired work ability [None]
  - Apathy [None]
  - Hallucination, auditory [None]
  - Disturbance in attention [None]
  - Tinnitus [None]
  - Palpitations [None]
  - Agoraphobia [None]
  - Headache [None]
  - Poisoning [None]
  - Suicidal ideation [None]
